FAERS Safety Report 5040167-8 (Version None)
Quarter: 2006Q2

REPORT INFORMATION
  Report Type: 
  Country: None (occurrence: None)
  Receive Date: 20060630
  Receipt Date: 20060619
  Transmission Date: 20061013
  Serious: Yes (Hospitalization, Other)
  Sender: FDA-Public Use
  Company Number: US-AMGEN-STX183546

PATIENT
  Sex: Female

DRUGS (1)
  1. ENBREL [Suspect]
     Indication: RHEUMATOID ARTHRITIS
     Route: 058
     Dates: start: 20051218

REACTIONS (4)
  - CONDITION AGGRAVATED [None]
  - INJECTION SITE PAIN [None]
  - MOVEMENT DISORDER [None]
  - RHEUMATOID ARTHRITIS [None]
